FAERS Safety Report 20228062 (Version 13)
Quarter: 2024Q4

REPORT INFORMATION
  Report Type: Spontaneous
  Country: US (occurrence: US)
  Receive Date: 20211224
  Receipt Date: 20241223
  Transmission Date: 20250115
  Serious: Yes (Hospitalization, Other)
  Sender: INCYTE
  Company Number: US-INCYTE CORPORATION-2021IN011785

PATIENT

DRUGS (137)
  1. JAKAFI [Suspect]
     Active Substance: RUXOLITINIB
     Indication: Non-Hodgkin^s lymphoma
     Dosage: 5 MILLIGRAM, BID
     Route: 048
     Dates: start: 20210623
  2. JAKAFI [Suspect]
     Active Substance: RUXOLITINIB
     Dosage: 5 MILLIGRAM, BID
     Route: 048
  3. JAKAFI [Suspect]
     Active Substance: RUXOLITINIB
     Dosage: 5 MILLIGRAM, BID
     Route: 048
  4. JAKAFI [Suspect]
     Active Substance: RUXOLITINIB
     Dosage: 5 MILLIGRAM, BID
     Route: 048
  5. JAKAFI [Suspect]
     Active Substance: RUXOLITINIB
     Dosage: 5 MILLIGRAM, BID
     Route: 048
  6. JAKAFI [Suspect]
     Active Substance: RUXOLITINIB
     Dosage: 5 MILLIGRAM, BID
     Route: 048
  7. JAKAFI [Suspect]
     Active Substance: RUXOLITINIB
     Dosage: 5 MILLIGRAM, BID
     Route: 048
  8. JAKAFI [Suspect]
     Active Substance: RUXOLITINIB
     Dosage: 5 MILLIGRAM, BID
     Route: 048
  9. JAKAFI [Suspect]
     Active Substance: RUXOLITINIB
     Dosage: 5 MILLIGRAM, BID
     Route: 048
  10. TACROLIMUS [Suspect]
     Active Substance: TACROLIMUS
     Indication: Product used for unknown indication
     Dosage: 0.5 MILLIGRAM
     Route: 065
     Dates: end: 202405
  11. TACROLIMUS [Suspect]
     Active Substance: TACROLIMUS
     Dosage: UNK
     Route: 065
     Dates: end: 202406
  12. TACROLIMUS [Suspect]
     Active Substance: TACROLIMUS
     Dosage: 10 MG
     Route: 065
  13. TACROLIMUS [Suspect]
     Active Substance: TACROLIMUS
     Dosage: 250 MILLIGRAM
     Route: 065
  14. TACROLIMUS [Suspect]
     Active Substance: TACROLIMUS
     Dosage: 500 MILLIGRAM
     Route: 065
  15. TACROLIMUS [Suspect]
     Active Substance: TACROLIMUS
     Dosage: 500 MILLIGRAM
     Route: 065
  16. TACROLIMUS [Suspect]
     Active Substance: TACROLIMUS
     Dosage: UNK, 25MCG(1000)
     Route: 065
  17. TACROLIMUS [Suspect]
     Active Substance: TACROLIMUS
     Dosage: 15 MG, CP2
     Route: 065
  18. TACROLIMUS [Suspect]
     Active Substance: TACROLIMUS
     Dosage: UNK (7.5-325M)
     Route: 065
  19. TACROLIMUS [Suspect]
     Active Substance: TACROLIMUS
     Dosage: UNK, 100 UNITS/ML
     Route: 065
  20. TACROLIMUS [Suspect]
     Active Substance: TACROLIMUS
     Dosage: 10 MG
     Route: 065
  21. TACROLIMUS [Suspect]
     Active Substance: TACROLIMUS
     Dosage: 5 MG
     Route: 065
  22. TACROLIMUS [Suspect]
     Active Substance: TACROLIMUS
     Dosage: 10 MG
     Route: 065
  23. TACROLIMUS [Suspect]
     Active Substance: TACROLIMUS
     Dosage: 20 MG
     Route: 065
  24. TACROLIMUS [Suspect]
     Active Substance: TACROLIMUS
     Dosage: 100 MG
     Route: 065
  25. TACROLIMUS [Suspect]
     Active Substance: TACROLIMUS
     Dosage: UNK, 0.2 SOP 2MG/1.5M
     Route: 065
  26. TACROLIMUS [Suspect]
     Active Substance: TACROLIMUS
     Dosage: 40 MG
     Route: 065
  27. TACROLIMUS [Suspect]
     Active Substance: TACROLIMUS
     Dosage: 500 MG
     Route: 065
  28. TACROLIMUS [Suspect]
     Active Substance: TACROLIMUS
     Dosage: UNK (10GM/15ML)
     Route: 065
  29. TACROLIMUS [Suspect]
     Active Substance: TACROLIMUS
     Dosage: 25 MG
     Route: 065
  30. TACROLIMUS [Suspect]
     Active Substance: TACROLIMUS
     Dosage: UNK
     Route: 065
  31. TACROLIMUS [Suspect]
     Active Substance: TACROLIMUS
     Dosage: 250 MG
     Route: 065
  32. TACROLIMUS [Suspect]
     Active Substance: TACROLIMUS
     Dosage: 250 MG
     Route: 065
  33. TACROLIMUS [Suspect]
     Active Substance: TACROLIMUS
     Dosage: UNK
     Route: 065
  34. TACROLIMUS [Suspect]
     Active Substance: TACROLIMUS
     Dosage: UNK
     Route: 065
  35. TACROLIMUS [Suspect]
     Active Substance: TACROLIMUS
     Dosage: UNK
     Route: 065
  36. TACROLIMUS [Suspect]
     Active Substance: TACROLIMUS
     Dosage: 15 MG
     Route: 065
  37. TACROLIMUS [Suspect]
     Active Substance: TACROLIMUS
     Dosage: UNK
     Route: 065
  38. TACROLIMUS [Suspect]
     Active Substance: TACROLIMUS
     Dosage: 10GM/15ML
     Route: 065
  39. TACROLIMUS [Suspect]
     Active Substance: TACROLIMUS
     Dosage: 100 UNITS/ML
     Route: 065
  40. TACROLIMUS [Suspect]
     Active Substance: TACROLIMUS
     Dosage: UNK (200MG/ML)
     Route: 065
  41. TACROLIMUS [Suspect]
     Active Substance: TACROLIMUS
     Dosage: 15 MILLIGRAM CP2
     Route: 065
  42. TACROLIMUS [Suspect]
     Active Substance: TACROLIMUS
     Dosage: 0.2 SOP 2MG/1.5M
     Route: 065
  43. TACROLIMUS [Suspect]
     Active Substance: TACROLIMUS
     Dosage: 25 MILLIGRAM
     Route: 065
  44. TACROLIMUS [Suspect]
     Active Substance: TACROLIMUS
     Dosage: UNK
     Route: 065
  45. TACROLIMUS [Suspect]
     Active Substance: TACROLIMUS
     Dosage: 0.25 MICROGRAM
     Route: 065
  46. CALQUENCE [Suspect]
     Active Substance: ACALABRUTINIB
     Indication: Product used for unknown indication
     Dosage: 100 MILLIGRAM TABLET
     Route: 065
     Dates: end: 202406
  47. CALQUENCE [Suspect]
     Active Substance: ACALABRUTINIB
     Dosage: 100 MILLIGRAM CAPSULE
     Route: 065
     Dates: end: 202406
  48. PREDNISONE [Suspect]
     Active Substance: PREDNISONE
     Indication: Product used for unknown indication
     Dosage: UNK
     Route: 065
  49. MEDROL [Suspect]
     Active Substance: METHYLPREDNISOLONE
     Indication: Product used for unknown indication
     Dosage: UNK
     Route: 065
  50. POSACONAZOLE [Suspect]
     Active Substance: POSACONAZOLE
     Indication: Product used for unknown indication
     Dosage: 100 MILLIGRAM
     Route: 065
     Dates: end: 202406
  51. POSACONAZOLE [Suspect]
     Active Substance: POSACONAZOLE
     Dosage: 18 MILLIGRAM PER MILLILITRE
     Route: 065
  52. POSACONAZOLE [Suspect]
     Active Substance: POSACONAZOLE
     Dosage: 40 MILLIGRAM PER MILLILITRE
     Route: 065
  53. ACETAMINOPHEN [Concomitant]
     Active Substance: ACETAMINOPHEN
     Indication: Product used for unknown indication
     Dosage: 500 MILLIGRAM
     Route: 065
  54. ACETAMINOPHEN [Concomitant]
     Active Substance: ACETAMINOPHEN
     Dosage: 80 MILLIGRAM
     Route: 065
  55. ACETAMINOPHEN [Concomitant]
     Active Substance: ACETAMINOPHEN
     Dosage: 500 MILLIGRAM
     Route: 065
  56. ACETAMINOPHEN [Concomitant]
     Active Substance: ACETAMINOPHEN
     Dosage: 325 MILLIGRAM
     Route: 065
  57. ACETAMINOPHEN [Concomitant]
     Active Substance: ACETAMINOPHEN
     Dosage: 160 MILLIGRAM PER MILLILITRE
     Route: 065
  58. ACETAMINOPHEN [Concomitant]
     Active Substance: ACETAMINOPHEN
     Dosage: 10 MILLIGRAM PER MILLILITRE
     Route: 065
  59. ACETAMINOPHEN [Concomitant]
     Active Substance: ACETAMINOPHEN
     Dosage: 100 MILLIGRAM PER MILLILITRE
     Route: 065
  60. ACETAMINOPHEN [Concomitant]
     Active Substance: ACETAMINOPHEN
     Dosage: 160 MILLIGRAM
     Route: 065
  61. ACETAMINOPHEN [Concomitant]
     Active Substance: ACETAMINOPHEN
     Dosage: 650 MILLIGRAM
     Route: 065
  62. ACETAMINOPHEN [Concomitant]
     Active Substance: ACETAMINOPHEN
     Dosage: 120 MILLIGRAM
     Route: 065
  63. ENULOSE [Concomitant]
     Active Substance: LACTULOSE
     Indication: Product used for unknown indication
     Dosage: 10GM/15ML
     Route: 065
  64. ADDERALL [Concomitant]
     Active Substance: AMPHETAMINE ASPARTATE\AMPHETAMINE SULFATE\DEXTROAMPHETAMINE SACCHARATE\DEXTROAMPHETAMINE SULFATE
     Indication: Product used for unknown indication
     Dosage: 10 MILLIGRAM
     Route: 065
  65. ADDERALL [Concomitant]
     Active Substance: AMPHETAMINE ASPARTATE\AMPHETAMINE SULFATE\DEXTROAMPHETAMINE SACCHARATE\DEXTROAMPHETAMINE SULFATE
     Dosage: 20 MILLIGRAM
     Route: 065
  66. MAGNESIUM [Concomitant]
     Active Substance: MAGNESIUM
     Indication: Product used for unknown indication
     Dosage: 500 MILLIGRAM
     Route: 065
  67. MAGNESIUM [Concomitant]
     Active Substance: MAGNESIUM
     Dosage: 250 MILLIGRAM
     Route: 065
  68. MAGNESIUM [Concomitant]
     Active Substance: MAGNESIUM
     Dosage: 100 MILLIGRAM
     Route: 065
  69. MAGNESIUM [Concomitant]
     Active Substance: MAGNESIUM
     Dosage: 250 MILLIGRAM
     Route: 065
  70. MAGNESIUM [Concomitant]
     Active Substance: MAGNESIUM
     Dosage: 500 MILLIGRAM
     Route: 065
  71. MAGNESIUM [Concomitant]
     Active Substance: MAGNESIUM
     Dosage: 250 MILLIGRAM
     Route: 065
  72. DOCUSATE SOD [Concomitant]
     Indication: Product used for unknown indication
     Dosage: 250 MILLIGRAM
     Route: 065
  73. DOCUSATE SOD [Concomitant]
     Dosage: 100 MILLIGRAM
     Route: 065
  74. DOCUSATE SOD [Concomitant]
     Dosage: 60 MILLIGRAM
     Route: 065
  75. DOCUSATE SOD [Concomitant]
     Dosage: 100 MILLIGRAM
     Route: 065
  76. DOCUSATE SOD [Concomitant]
     Dosage: 100 MILLIGRAM
     Route: 065
  77. VITAMIN D NOS [Concomitant]
     Active Substance: CHOLECALCIFEROL\ERGOCALCIFEROL
     Indication: Product used for unknown indication
     Dosage: 25MCG(1000
     Route: 065
  78. TUMS [Concomitant]
     Active Substance: CALCIUM CARBONATE
     Indication: Product used for unknown indication
     Dosage: 500 MILLIGRAM
     Route: 065
  79. TUMS [Concomitant]
     Active Substance: CALCIUM CARBONATE
     Dosage: 1000 MILLIGRAM
     Route: 065
  80. TUMS [Concomitant]
     Active Substance: CALCIUM CARBONATE
     Dosage: 1 GRAM
     Route: 065
  81. TUMS [Concomitant]
     Active Substance: CALCIUM CARBONATE
     Dosage: 500 MILLIGRAM
     Route: 065
  82. DEXTROAMPHETAMINE [Concomitant]
     Active Substance: DEXTROAMPHETAMINE
     Indication: Product used for unknown indication
     Dosage: 15 MILLIGRAM CP2
     Route: 065
  83. DEXTROAMPHETAMINE [Concomitant]
     Active Substance: DEXTROAMPHETAMINE
     Dosage: 10 MILLIGRAM
     Route: 065
  84. DEXTROAMPHETAMINE [Concomitant]
     Active Substance: DEXTROAMPHETAMINE
     Dosage: 5 MILLIGRAM
     Route: 065
  85. DEXTROAMPHETAMINE [Concomitant]
     Active Substance: DEXTROAMPHETAMINE
     Dosage: 15 MILLIGRAM
     Route: 065
  86. DEXTROAMPHETAMINE [Concomitant]
     Active Substance: DEXTROAMPHETAMINE
     Dosage: 5 MILLIGRAM
     Route: 065
  87. DEXTROAMPHETAMINE [Concomitant]
     Active Substance: DEXTROAMPHETAMINE
     Dosage: 10 MILLIGRAM
     Route: 065
  88. DEXTROAMPHETAMINE [Concomitant]
     Active Substance: DEXTROAMPHETAMINE
     Dosage: 5 MILLIGRAM PER MILLILITRE
     Route: 065
  89. HYDROCODONE [Concomitant]
     Active Substance: HYDROCODONE
     Indication: Product used for unknown indication
     Dosage: 7.5-325M
     Route: 065
  90. MONTELUKAST [Concomitant]
     Active Substance: MONTELUKAST SODIUM
     Indication: Product used for unknown indication
     Dosage: 10 MILLIGRAM
     Route: 065
  91. NOVOLIN N [Concomitant]
     Active Substance: INSULIN HUMAN
     Indication: Product used for unknown indication
     Dosage: 100 UNITS/ML
     Route: 065
  92. OZEMPIC [Concomitant]
     Active Substance: SEMAGLUTIDE
     Indication: Product used for unknown indication
     Dosage: 0.2 SOP 2MG/1.5M
     Route: 065
  93. OZEMPIC [Concomitant]
     Active Substance: SEMAGLUTIDE
     Dosage: 1 MILLIGRAM
     Route: 065
  94. OZEMPIC [Concomitant]
     Active Substance: SEMAGLUTIDE
     Dosage: 0 MILLIGRAM
     Route: 065
  95. PANTOPRAZOLE [Concomitant]
     Active Substance: PANTOPRAZOLE
     Indication: Product used for unknown indication
     Dosage: 40 MILLIGRAM
     Route: 065
  96. ROSUVASTATIN CALCIUM [Concomitant]
     Active Substance: ROSUVASTATIN CALCIUM
     Indication: Product used for unknown indication
     Dosage: 5 MILLIGRAM
     Route: 065
  97. ROSUVASTATIN CALCIUM [Concomitant]
     Active Substance: ROSUVASTATIN CALCIUM
     Dosage: 20 MILLIGRAM
     Route: 065
  98. ROSUVASTATIN CALCIUM [Concomitant]
     Active Substance: ROSUVASTATIN CALCIUM
     Dosage: 5 MILLIGRAM
     Route: 065
  99. ROSUVASTATIN CALCIUM [Concomitant]
     Active Substance: ROSUVASTATIN CALCIUM
     Dosage: 10 MILLIGRAM
     Route: 065
  100. ROSUVASTATIN CALCIUM [Concomitant]
     Active Substance: ROSUVASTATIN CALCIUM
     Dosage: 40 MILLIGRAM
     Route: 065
  101. HYDROCHLOROTHIAZIDE [Concomitant]
     Active Substance: HYDROCHLOROTHIAZIDE
     Indication: Product used for unknown indication
     Dosage: 25 MILLIGRAM
     Route: 065
  102. HYDROCHLOROTHIAZIDE [Concomitant]
     Active Substance: HYDROCHLOROTHIAZIDE
     Dosage: 13 MILLIGRAM
     Route: 065
  103. HYDROCHLOROTHIAZIDE [Concomitant]
     Active Substance: HYDROCHLOROTHIAZIDE
     Dosage: 50 MILLIGRAM
     Route: 065
  104. VITAMIN B6 [Concomitant]
     Active Substance: PYRIDOXINE HYDROCHLORIDE
     Indication: Product used for unknown indication
     Dosage: 250 MILLIGRAM
     Route: 065
  105. INSULIN NOS [Concomitant]
     Active Substance: INSULIN NOS
     Indication: Product used for unknown indication
     Route: 065
  106. GUAR GUM [Concomitant]
     Active Substance: GUAR GUM
     Indication: Product used for unknown indication
     Dosage: UNK
     Route: 065
  107. TESTOSTERONE [Concomitant]
     Active Substance: TESTOSTERONE
     Indication: Product used for unknown indication
     Dosage: 1 PERCENT
     Route: 065
  108. TESTOSTERONE [Concomitant]
     Active Substance: TESTOSTERONE
     Dosage: 50 MILLIGRAM
     Route: 065
  109. TESTOSTERONE [Concomitant]
     Active Substance: TESTOSTERONE
     Dosage: 25 MILLIGRAM
     Route: 065
  110. TESTOSTERONE [Concomitant]
     Active Substance: TESTOSTERONE
     Dosage: 2 PERCENT
     Route: 065
  111. TESTOSTERONE [Concomitant]
     Active Substance: TESTOSTERONE
     Dosage: 20 MILLIGRAM
     Route: 065
  112. TESTOSTERONE [Concomitant]
     Active Substance: TESTOSTERONE
     Dosage: 13 MILLIGRAM
     Route: 065
  113. TESTOSTERONE [Concomitant]
     Active Substance: TESTOSTERONE
     Dosage: 41 MILLIGRAM
     Route: 065
  114. TESTOSTERONE [Concomitant]
     Active Substance: TESTOSTERONE
     Dosage: 30 MILLIGRAM
     Route: 065
  115. TESTOSTERONE [Concomitant]
     Active Substance: TESTOSTERONE
     Dosage: 25 MILLIGRAM
     Route: 065
  116. CALCITRIOL [Concomitant]
     Active Substance: CALCITRIOL
     Indication: Product used for unknown indication
     Dosage: 0.25 MICROGRAM
     Route: 065
  117. CALCITRIOL [Concomitant]
     Active Substance: CALCITRIOL
     Dosage: 0 MICROGRAM
     Route: 065
  118. CALCITRIOL [Concomitant]
     Active Substance: CALCITRIOL
     Dosage: 1 MICROG/ML
     Route: 065
  119. VITAMIN D3 [Concomitant]
     Active Substance: CHOLECALCIFEROL
     Indication: Product used for unknown indication
     Dosage: D3 CHE (2000 UT)
     Route: 065
  120. VITAMIN D3 [Concomitant]
     Active Substance: CHOLECALCIFEROL
     Dosage: 400 INTERNATIONAL UNIT
     Route: 065
  121. VITAMIN D3 [Concomitant]
     Active Substance: CHOLECALCIFEROL
     Dosage: 1000 INTERNATIONAL UNIT
     Route: 065
  122. VITAMIN D3 [Concomitant]
     Active Substance: CHOLECALCIFEROL
     Dosage: 5000 INTERNATIONAL UNIT
     Route: 065
  123. VITAMIN D3 [Concomitant]
     Active Substance: CHOLECALCIFEROL
     Dosage: 2000 INTERNATIONAL UNIT
     Route: 065
  124. VITAMIN D3 [Concomitant]
     Active Substance: CHOLECALCIFEROL
     Dosage: 50 INTERNATIONAL UNIT
     Route: 065
  125. VITAMIN D3 [Concomitant]
     Active Substance: CHOLECALCIFEROL
     Dosage: 3000 INTERNATIONAL UNIT
     Route: 065
  126. PYRIDOXINE HYDROCHLORIDE [Concomitant]
     Active Substance: PYRIDOXINE HYDROCHLORIDE
     Indication: Product used for unknown indication
     Dosage: 100 MILLIGRAM PER MILLILITRE
     Route: 065
  127. PYRIDOXINE HYDROCHLORIDE [Concomitant]
     Active Substance: PYRIDOXINE HYDROCHLORIDE
     Dosage: 500 MILLIGRAM PER MILLILITRE
     Route: 065
  128. PYRIDOXINE HYDROCHLORIDE [Concomitant]
     Active Substance: PYRIDOXINE HYDROCHLORIDE
     Dosage: 25 MILLIGRAM
     Route: 065
  129. PYRIDOXINE HYDROCHLORIDE [Concomitant]
     Active Substance: PYRIDOXINE HYDROCHLORIDE
     Dosage: 100 MILLIGRAM
     Route: 065
  130. PYRIDOXINE HYDROCHLORIDE [Concomitant]
     Active Substance: PYRIDOXINE HYDROCHLORIDE
     Dosage: 250 MILLIGRAM
     Route: 065
  131. PYRIDOXINE HYDROCHLORIDE [Concomitant]
     Active Substance: PYRIDOXINE HYDROCHLORIDE
     Dosage: 50 MILLIGRAM
     Route: 065
  132. PYRIDOXINE HYDROCHLORIDE [Concomitant]
     Active Substance: PYRIDOXINE HYDROCHLORIDE
     Dosage: 100 MILLIGRAM PER MILLILITRE
     Route: 065
  133. PYRIDOXINE HYDROCHLORIDE [Concomitant]
     Active Substance: PYRIDOXINE HYDROCHLORIDE
     Dosage: 500 MILLIGRAM
     Route: 065
  134. PYRIDOXINE HYDROCHLORIDE [Concomitant]
     Active Substance: PYRIDOXINE HYDROCHLORIDE
     Dosage: 25 MILLIGRAM
     Route: 065
  135. PYRIDOXINE HYDROCHLORIDE [Concomitant]
     Active Substance: PYRIDOXINE HYDROCHLORIDE
     Dosage: 100 MILLIGRAM
     Route: 065
  136. PYRIDOXINE HYDROCHLORIDE [Concomitant]
     Active Substance: PYRIDOXINE HYDROCHLORIDE
     Dosage: 250 MILLIGRAM
     Route: 065
  137. PYRIDOXINE HYDROCHLORIDE [Concomitant]
     Active Substance: PYRIDOXINE HYDROCHLORIDE
     Dosage: 50 MILLIGRAM
     Route: 065

REACTIONS (84)
  - COVID-19 [Unknown]
  - Nephrolithiasis [Recovering/Resolving]
  - Prostatomegaly [Unknown]
  - Bone marrow disorder [Unknown]
  - Small intestinal obstruction [Unknown]
  - Narcolepsy [Unknown]
  - Neuropathy peripheral [Unknown]
  - Neoplasm [Unknown]
  - Ureteric rupture [Unknown]
  - Joint instability [Unknown]
  - Gingival pain [Unknown]
  - Gingival bleeding [Unknown]
  - Memory impairment [Unknown]
  - Fall [Unknown]
  - Fatigue [Unknown]
  - Constipation [Recovered/Resolved]
  - Dizziness [Unknown]
  - Coccydynia [Unknown]
  - Musculoskeletal pain [Unknown]
  - Pruritus [Unknown]
  - Amnesia [Unknown]
  - Swelling [Unknown]
  - Hypersensitivity [Unknown]
  - Brain fog [Unknown]
  - Blood creatinine increased [Unknown]
  - Glomerular filtration rate decreased [Unknown]
  - Faeces soft [Unknown]
  - Blood creatinine abnormal [Unknown]
  - Dyspnoea [Unknown]
  - Thinking abnormal [Unknown]
  - Asthenia [Unknown]
  - Somnolence [Unknown]
  - Malaise [Unknown]
  - Nasal crusting [Unknown]
  - Sinus disorder [Unknown]
  - Ageusia [Unknown]
  - Weight fluctuation [Unknown]
  - Appetite disorder [Unknown]
  - Balance disorder [Unknown]
  - Muscle spasms [Unknown]
  - Pain [Unknown]
  - Discouragement [Unknown]
  - Decreased activity [Unknown]
  - Time perception altered [Unknown]
  - Attention deficit hyperactivity disorder [Unknown]
  - Ill-defined disorder [Unknown]
  - Diarrhoea [Unknown]
  - Neoplasm [Unknown]
  - Dizziness postural [Unknown]
  - Rib fracture [Unknown]
  - Blood pressure fluctuation [Unknown]
  - Vertigo positional [Unknown]
  - Respiratory syncytial virus infection [Unknown]
  - Vision blurred [Unknown]
  - Blood glucose increased [Unknown]
  - Blood immunoglobulin M decreased [Unknown]
  - Gastrooesophageal reflux disease [Unknown]
  - Blood immunoglobulin A decreased [Unknown]
  - Blood immunoglobulin G decreased [Unknown]
  - Disturbance in attention [Unknown]
  - Blood uric acid increased [Unknown]
  - Red blood cell count decreased [Unknown]
  - Haemoglobin decreased [Unknown]
  - Haematocrit decreased [Unknown]
  - Platelet count decreased [Unknown]
  - Mean platelet volume increased [Unknown]
  - Blood testosterone decreased [Unknown]
  - Myalgia [Unknown]
  - Back pain [Unknown]
  - Plantar fasciitis [Unknown]
  - Arthralgia [Unknown]
  - Pain in extremity [Unknown]
  - Faeces hard [Unknown]
  - Infrequent bowel movements [Unknown]
  - Foot fracture [Unknown]
  - Blister [Unknown]
  - Apathy [Unknown]
  - Confusional state [Unknown]
  - Gastrointestinal neoplasm [Unknown]
  - Dermatitis [Unknown]
  - Blood calcium abnormal [Unknown]
  - Product dose omission in error [Unknown]
  - Product dose omission issue [Unknown]
  - Off label use [Unknown]

NARRATIVE: CASE EVENT DATE: 20210623
